FAERS Safety Report 9943014 (Version 2)
Quarter: 2014Q1

REPORT INFORMATION
  Report Type: Spontaneous
  Country: US (occurrence: US)
  Receive Date: 20140303
  Receipt Date: 20140303
  Transmission Date: 20141002
  Serious: Yes (Hospitalization, Other)
  Sender: FDA-Public Use
  Company Number: US-ABBVIE-12P-163-0928332-00

PATIENT
  Age: 18 Year
  Sex: Male
  Weight: 63.56 kg

DRUGS (2)
  1. HUMIRA 40 MG/0.8 ML PEN [Suspect]
     Indication: PSORIATIC ARTHROPATHY
     Dates: start: 2008, end: 2011
  2. UNKNOWN ADHD DRUG [Concomitant]
     Indication: ATTENTION DEFICIT/HYPERACTIVITY DISORDER

REACTIONS (9)
  - Renal mass [Unknown]
  - Testis cancer [Not Recovered/Not Resolved]
  - Vomiting [Recovered/Resolved]
  - Weight decreased [Unknown]
  - Abdominal pain [Unknown]
  - Pain [Unknown]
  - Skeletal injury [Recovered/Resolved]
  - Sepsis [Recovered/Resolved]
  - Surgery [Unknown]
